FAERS Safety Report 9513513 (Version 1)
Quarter: 2013Q3

REPORT INFORMATION
  Report Type: Spontaneous
  Country: US (occurrence: US)
  Receive Date: 20130910
  Receipt Date: 20130910
  Transmission Date: 20140515
  Serious: No
  Sender: FDA-Public Use
  Company Number: US-TARO-2013P1011290

PATIENT
  Age: 56 Year
  Sex: Female
  Weight: 99.79 kg

DRUGS (18)
  1. WARFARIN SODIUM TABLETS USP 5MG [Suspect]
     Route: 048
     Dates: start: 2009, end: 2010
  2. WARFARIN SODIUM TABLETS USP 5MG [Suspect]
     Route: 048
     Dates: start: 201010
  3. WARFARIN SODIUM TABLETS USP 5MG [Suspect]
     Route: 048
     Dates: start: 201010
  4. LEVOTHYROXINE [Concomitant]
  5. PREDNISONE [Concomitant]
  6. DILTIAZEM [Concomitant]
  7. METHOTREXATE [Concomitant]
  8. CALCIUM [Concomitant]
  9. VITAMIN D [Concomitant]
  10. CELEBREX [Concomitant]
  11. FOLIC ACID [Concomitant]
  12. BUTALBITAL/APAP/CAFF [Concomitant]
  13. LOSARTAN POTASSIUM [Concomitant]
  14. OMEPRAZOLE [Concomitant]
  15. FUROSEMIDE [Concomitant]
  16. CLONAZEPAM [Concomitant]
  17. ALLEGRA [Concomitant]
  18. ALBUTEROL INHALER [Concomitant]

REACTIONS (1)
  - International normalised ratio fluctuation [Unknown]
